FAERS Safety Report 8403792 (Version 2)
Quarter: 2012Q4

REPORT INFORMATION
  Report Type: 
  Country: FR (occurrence: FR)
  Receive Date: 20120213
  Receipt Date: 20121108
  Transmission Date: 20130627
  Serious: Yes (Death)
  Sender: FDA-Public Use
  Company Number: FR-ASTRAZENECA-2012SE08904

PATIENT
  Age: 14610 Day
  Sex: Male

DRUGS (6)
  1. XEROQUEL [Suspect]
     Indication: SCHIZOPHRENIA
     Route: 048
     Dates: start: 201201
  2. RISPERDAL [Suspect]
     Indication: SCHIZOPHRENIA
     Route: 030
  3. NOZINAN [Suspect]
     Indication: SCHIZOPHRENIA
     Dosage: 50 MG IN THE MORNING, 50 MG IN MIDDAY, 25 MG IN THE EVENING, 50 MG AT NIGHT
  4. XANAX [Suspect]
     Indication: SCHIZOPHRENIA
  5. SUBUTEX [Suspect]
  6. TERCIAN [Concomitant]

REACTIONS (1)
  - Respiratory distress [Fatal]
